FAERS Safety Report 6082389-3 (Version None)
Quarter: 2009Q1

REPORT INFORMATION
  Report Type: 
  Country: None (occurrence: None)
  Receive Date: 20090130
  Receipt Date: 20080109
  Transmission Date: 20090719
  Serious: Yes (Other)
  Sender: FDA-Public Use
  Company Number: 8025998

PATIENT
  Age: 72 Year
  Sex: Male

DRUGS (13)
  1. KEPPRA [Suspect]
     Indication: CONVULSION
     Dosage: 250 MG 2/D PO
     Route: 048
     Dates: start: 20051128, end: 20060317
  2. DYAZIDE [Concomitant]
  3. COUMADIN [Concomitant]
  4. DIGOXIN [Concomitant]
  5. AMARYL [Concomitant]
  6. PROVIGIL [Concomitant]
  7. METFORMIN HCL [Concomitant]
  8. PROTONIX [Concomitant]
  9. FLOMAX [Concomitant]
  10. LEXAPRO [Concomitant]
  11. DITROPAN XL [Concomitant]
  12. ALLOPURINOL [Concomitant]
  13. VITAMIN B12/FOLIC ACID [Concomitant]

REACTIONS (1)
  - PANCREATITIS [None]
